FAERS Safety Report 8375977-2 (Version None)
Quarter: 2012Q2

REPORT INFORMATION
  Report Type: 
  Country: None (occurrence: None)
  Receive Date: 20120522
  Receipt Date: 20120518
  Transmission Date: 20120825
  Serious: Yes (Hospitalization)
  Sender: FDA-Public Use
  Company Number: KR-MPIJNJ-2012-01720

PATIENT

DRUGS (7)
  1. MAGNESIUM OXIDE [Concomitant]
     Indication: CONSTIPATION
     Dosage: 250 MG, UNK
     Route: 048
     Dates: start: 20111230, end: 20120226
  2. CIPROFLOXACIN [Concomitant]
     Indication: ANTIBIOTIC THERAPY
     Dosage: 200 MG, UNK
     Route: 042
     Dates: start: 20120217, end: 20120228
  3. AZEPTIN                            /00884001/ [Concomitant]
     Indication: DYSPNOEA
     Dosage: 1 MG, UNK
     Route: 048
     Dates: start: 20120223, end: 20120305
  4. MELPHALAN [Suspect]
     Indication: MULTIPLE MYELOMA
     Dosage: 9 MG/M2, UNK
     Route: 065
     Dates: start: 20111223, end: 20111226
  5. CHLORPHENIRAMINE MALEATE [Concomitant]
     Indication: PROPHYLAXIS
     Dosage: 4 MG, UNK
     Route: 042
     Dates: start: 20120223, end: 20120223
  6. VELCADE [Suspect]
     Indication: MULTIPLE MYELOMA
     Dosage: 1.3 MG/M2, UNK
     Route: 042
     Dates: start: 20111223, end: 20120206
  7. PREDNISOLONE [Suspect]
     Indication: MULTIPLE MYELOMA
     Dosage: 60 MG/M2, UNK
     Route: 065
     Dates: start: 20111223, end: 20111226

REACTIONS (1)
  - ENTEROCOLITIS INFECTIOUS [None]
